FAERS Safety Report 15744553 (Version 1)
Quarter: 2018Q4

REPORT INFORMATION
  Report Type: Spontaneous
  Country: US (occurrence: US)
  Receive Date: 20181220
  Receipt Date: 20181220
  Transmission Date: 20190205
  Serious: Yes (Other)
  Sender: FDA-Public Use
  Company Number: US-MALLINCKRODT-T201705320

PATIENT
  Sex: Male

DRUGS (5)
  1. CELEBREX [Concomitant]
     Active Substance: CELECOXIB
     Indication: PRODUCT USED FOR UNKNOWN INDICATION
     Dosage: 200 MG, 2 TIMES A DAY
  2. FENTANYL TRANSDERMAL SYSTEM [Suspect]
     Active Substance: FENTANYL
     Indication: PAIN
     Dosage: 75 MCG/HOUR, EVERY 3 DAYS
     Route: 062
  3. FENTANYL TRANSDERMAL SYSTEM [Suspect]
     Active Substance: FENTANYL
     Dosage: 75 MCG/HOUR, EVERY 48 HOURS (EVERY 2 DAYS)
     Route: 062
  4. FENTANYL TRANSDERMAL SYSTEM [Suspect]
     Active Substance: FENTANYL
     Indication: PAIN
     Dosage: 50 MCG, ONCE EVERY 3 DAYS
     Route: 065
  5. COLAXIN [Concomitant]
     Indication: PRODUCT USED FOR UNKNOWN INDICATION
     Dosage: 800 MG, 3-4 TIMES A DAY

REACTIONS (7)
  - Drug effect incomplete [Unknown]
  - Influenza [Unknown]
  - Musculoskeletal discomfort [Unknown]
  - Malaise [Unknown]
  - Feeding disorder [Unknown]
  - Weight decreased [Unknown]
  - Wrong technique in product usage process [Unknown]
